FAERS Safety Report 11493315 (Version 1)
Quarter: 2015Q3

REPORT INFORMATION
  Report Type: Other
  Country: ES (occurrence: ES)
  Receive Date: 20150911
  Receipt Date: 20150911
  Transmission Date: 20151125
  Serious: Yes (Other)
  Sender: FDA-Public Use
  Company Number: ES-LUPIN PHARMACEUTICALS INC.-2015-02741

PATIENT
  Age: 35 Year
  Sex: Female

DRUGS (1)
  1. ETHINYLESTRADIOL + DROSPIRENONE [Suspect]
     Active Substance: DROSPIRENONE\ETHINYL ESTRADIOL
     Indication: SECONDARY HYPOGONADISM
     Route: 065

REACTIONS (1)
  - Porphyria non-acute [Recovered/Resolved]
